FAERS Safety Report 7409576-3 (Version None)
Quarter: 2011Q2

REPORT INFORMATION
  Report Type: 
  Country: None (occurrence: None)
  Receive Date: 20110412
  Receipt Date: 20110329
  Transmission Date: 20111010
  Serious: Yes (Other)
  Sender: FDA-Public Use
  Company Number: AT-JNJFOC-20110306373

PATIENT
  Age: 45 Year
  Sex: Male

DRUGS (4)
  1. REMICADE [Suspect]
     Route: 042
  2. REMICADE [Suspect]
     Dosage: 1-2 INFUSIONS
     Route: 042
  3. REMICADE [Suspect]
     Indication: COLITIS
     Dosage: 3RD OR 4TH INFUSION
     Route: 042
  4. CLAVERSAL [Concomitant]
     Route: 065

REACTIONS (1)
  - SARCOIDOSIS [None]
